FAERS Safety Report 20899684 (Version 1)
Quarter: 2022Q2

REPORT INFORMATION
  Report Type: Spontaneous
  Country: FR (occurrence: FR)
  Receive Date: 20220601
  Receipt Date: 20220601
  Transmission Date: 20220721
  Serious: Yes (Life-Threatening, Hospitalization, Other)
  Sender: FDA-Public Use
  Company Number: FR-LUPIN PHARMACEUTICALS INC.-2022-07825

PATIENT
  Age: 66 Year
  Sex: Female

DRUGS (4)
  1. PHENELZINE [Interacting]
     Active Substance: PHENELZINE
     Indication: Depression
     Dosage: UNK
     Route: 065
  2. DEXTROMETHORPHAN HYDROBROMIDE [Interacting]
     Active Substance: DEXTROMETHORPHAN HYDROBROMIDE
     Indication: Drug abuse
     Dosage: UNK (SELF-MEDICATION (THREE TIMES A DAY AT THERAPEUTIC DOSE), SYRUP)
     Route: 048
  3. ARIPIPRAZOLE [Concomitant]
     Active Substance: ARIPIPRAZOLE
     Indication: Depression
     Dosage: UNK
     Route: 065
  4. TRIMEPRAZINE [Concomitant]
     Active Substance: TRIMEPRAZINE
     Indication: Depression
     Dosage: UNK
     Route: 065

REACTIONS (9)
  - Drug interaction [Unknown]
  - Serotonin syndrome [Recovered/Resolved]
  - Coma [Recovered/Resolved]
  - Respiratory distress [Unknown]
  - Cardiovascular insufficiency [Unknown]
  - Rhabdomyolysis [Unknown]
  - Transaminases increased [Unknown]
  - Renal failure [Unknown]
  - Organ failure [Recovered/Resolved]
